FAERS Safety Report 5953733-X (Version None)
Quarter: 2008Q4

REPORT INFORMATION
  Report Type: 
  Country: None (occurrence: None)
  Receive Date: 20081114
  Receipt Date: 20081105
  Transmission Date: 20090506
  Serious: Yes (Hospitalization)
  Sender: FDA-Public Use
  Company Number: FR-ASTRAZENECA-2008CG01641

PATIENT
  Sex: Male

DRUGS (2)
  1. ZESTRIL [Suspect]
     Route: 048
  2. ISOPTIN [Suspect]

REACTIONS (3)
  - HYPOTENSION [None]
  - MALAISE [None]
  - OVERDOSE [None]
